FAERS Safety Report 18599981 (Version 2)
Quarter: 2020Q4

REPORT INFORMATION
  Report Type: Spontaneous
  Country: NL (occurrence: NL)
  Receive Date: 20201210
  Receipt Date: 20201225
  Transmission Date: 20210114
  Serious: Yes (Other)
  Sender: FDA-Public Use
  Company Number: NL-ASTELLAS-2020US043062

PATIENT
  Age: 79 Year
  Sex: Male

DRUGS (5)
  1. HYDREA [Suspect]
     Active Substance: HYDROXYUREA
     Dosage: UNK UNK, UNKNOWN FREQ. (LOWERING)
     Route: 065
  2. GILTERITINIB [Suspect]
     Active Substance: GILTERITINIB
     Indication: ACUTE MYELOID LEUKAEMIA
     Route: 048
     Dates: start: 20201020, end: 20201124
  3. HYDREA [Suspect]
     Active Substance: HYDROXYUREA
     Indication: PRODUCT USED FOR UNKNOWN INDICATION
     Dosage: UNK UNK, UNKNOWN FREQ.
     Route: 065
  4. HYDREA [Suspect]
     Active Substance: HYDROXYUREA
     Dosage: UNK UNK, UNKNOWN FREQ. (INCREASED)
     Route: 065
  5. AZACITIDINE. [Concomitant]
     Active Substance: AZACITIDINE
     Indication: ACUTE MYELOID LEUKAEMIA
     Dosage: UNK UNK, UNKNOWN FREQ.
     Route: 065

REACTIONS (1)
  - Acute myeloid leukaemia [Not Recovered/Not Resolved]
